FAERS Safety Report 15328101 (Version 1)
Quarter: 2018Q3

REPORT INFORMATION
  Report Type: Report from Study
  Country: None (occurrence: RO)
  Receive Date: 20180828
  Receipt Date: 20180828
  Transmission Date: 20181010
  Serious: Yes (Hospitalization)
  Sender: FDA-Public Use
  Company Number: RO-ABBVIE-18S-135-2460728-00

PATIENT
  Age: 43 Year
  Sex: Female

DRUGS (1)
  1. DUODOPA [Suspect]
     Active Substance: CARBIDOPA\LEVODOPA
     Indication: PARKINSON^S DISEASE
     Dosage: MD=3.50; CD=1.50; ED=1.00; NRED=2
     Route: 050
     Dates: start: 20140701

REACTIONS (5)
  - Depression [Recovering/Resolving]
  - Constipation [Recovering/Resolving]
  - Iron deficiency anaemia [Recovering/Resolving]
  - Asymptomatic bacteriuria [Recovering/Resolving]
  - Metabolic disorder [Recovering/Resolving]

NARRATIVE: CASE EVENT DATE: 20180806
